FAERS Safety Report 25743673 (Version 2)
Quarter: 2025Q4

REPORT INFORMATION
  Report Type: Spontaneous
  Country: EU (occurrence: EU)
  Receive Date: 20250831
  Receipt Date: 20251106
  Transmission Date: 20260118
  Serious: Yes (Hospitalization)
  Sender: ORGANON
  Company Number: None

PATIENT
  Age: 100 Year
  Sex: Female
  Weight: 59 kg

DRUGS (7)
  1. MIRTAZAPINE [Suspect]
     Active Substance: MIRTAZAPINE
     Indication: Depression
     Dosage: 30 MILLIGRAM, QD
     Dates: start: 20230709, end: 20250818
  2. ELIQUIS [Concomitant]
     Active Substance: APIXABAN
     Dosage: UNK
  3. FUROSEMIDE [Concomitant]
     Active Substance: FUROSEMIDE
     Dosage: UNK
  4. VERAPAMIL [HYDROCHLORIDE] [Concomitant]
     Dosage: UNK
  5. OCUFEN [Concomitant]
     Active Substance: FLURBIPROFEN SODIUM
     Dosage: UNK
  6. AZOPT [Concomitant]
     Active Substance: BRINZOLAMIDE
     Dosage: UNK
  7. MONOKETO [Concomitant]
     Dosage: UNK

REACTIONS (1)
  - Hepatic cytolysis [Recovering/Resolving]

NARRATIVE: CASE EVENT DATE: 20250812
